FAERS Safety Report 15902734 (Version 2)
Quarter: 2019Q1

REPORT INFORMATION
  Report Type: Report from Study
  Country: None (occurrence: US)
  Receive Date: 20190202
  Receipt Date: 20190205
  Transmission Date: 20190417
  Serious: Yes (Hospitalization, Other)
  Sender: FDA-Public Use
  Company Number: US-ABBVIE-17K-163-2045747-00

PATIENT
  Sex: Female

DRUGS (4)
  1. CRESTOR [Concomitant]
     Active Substance: ROSUVASTATIN CALCIUM
     Indication: BLOOD CHOLESTEROL INCREASED
  2. LEVOTHYROXINE. [Concomitant]
     Active Substance: LEVOTHYROXINE
     Indication: HYPOTHYROIDISM
  3. VICTOZA [Concomitant]
     Active Substance: LIRAGLUTIDE
     Indication: TYPE 2 DIABETES MELLITUS
  4. HUMIRA [Suspect]
     Active Substance: ADALIMUMAB
     Indication: RHEUMATOID ARTHRITIS
     Route: 058
     Dates: start: 2014, end: 2018

REACTIONS (7)
  - Cataract [Recovered/Resolved]
  - Pain [Not Recovered/Not Resolved]
  - Limb injury [Recovered/Resolved]
  - Upper limb fracture [Recovered/Resolved]
  - Fall [Recovered/Resolved]
  - Nerve compression [Recovered/Resolved]
  - Humerus fracture [Recovered/Resolved]

NARRATIVE: CASE EVENT DATE: 2017
